FAERS Safety Report 13138098 (Version 1)
Quarter: 2017Q1

REPORT INFORMATION
  Report Type: Spontaneous
  Country: US (occurrence: US)
  Receive Date: 20170123
  Receipt Date: 20170123
  Transmission Date: 20170428
  Serious: No
  Sender: FDA-Public Use
  Company Number: US-UNITED THERAPEUTICS-UNT-2016-008545

PATIENT
  Age: 56 Year
  Sex: Female
  Weight: 60.32 kg

DRUGS (2)
  1. TYVASO [Suspect]
     Active Substance: TREPROSTINIL
     Dosage: UNK
  2. TYVASO [Suspect]
     Active Substance: TREPROSTINIL
     Indication: PULMONARY HYPERTENSION
     Dosage: 18-54 MICROGRAMS, QID
     Dates: start: 20160224

REACTIONS (6)
  - Skin ulcer [Recovering/Resolving]
  - Arthralgia [Recovered/Resolved]
  - Head discomfort [Recovered/Resolved]
  - Periorbital oedema [Unknown]
  - Oedema peripheral [Unknown]
  - Pyrexia [Recovered/Resolved]

NARRATIVE: CASE EVENT DATE: 201605
